FAERS Safety Report 12539896 (Version 1)
Quarter: 2016Q3

REPORT INFORMATION
  Report Type: Spontaneous
  Country: None (occurrence: None)
  Receive Date: 20160707
  Receipt Date: 20160707
  Transmission Date: 20161109
  Serious: Yes (Life-Threatening, Hospitalization, Disabling, Other)
  Sender: FDA-Public Use
  Company Number: None

PATIENT

DRUGS (1)
  1. INVEGA SUSTENNA [Suspect]
     Active Substance: PALIPERIDONE PALMITATE
     Indication: PRODUCT USED FOR UNKNOWN INDICATION
     Dosage: 1 SYRINGE ONCE A MONTH INJECTION IN THE ARM
     Dates: start: 20150101, end: 20150102

REACTIONS (10)
  - Pain [None]
  - Tinnitus [None]
  - Migraine [None]
  - Stress [None]
  - Screaming [None]
  - Cardiac disorder [None]
  - Headache [None]
  - Dystonia [None]
  - Blood pressure measurement [None]
  - Nervous system disorder [None]

NARRATIVE: CASE EVENT DATE: 20150101
